FAERS Safety Report 5122244-6 (Version None)
Quarter: 2006Q4

REPORT INFORMATION
  Report Type: 
  Country: None (occurrence: None)
  Receive Date: 20061006
  Receipt Date: 20060928
  Transmission Date: 20070319
  Serious: Yes (Hospitalization)
  Sender: FDA-Public Use
  Company Number: US-MERCK-0610USA01258

PATIENT
  Age: 21 Year
  Sex: Female

DRUGS (1)
  1. PRIMAXIN [Suspect]
     Route: 042

REACTIONS (8)
  - CSF GLUCOSE DECREASED [None]
  - CSF PROTEIN INCREASED [None]
  - DRUG INEFFECTIVE [None]
  - GENERAL PHYSICAL HEALTH DETERIORATION [None]
  - LEUKOCYTOSIS [None]
  - NERVOUS SYSTEM DISORDER [None]
  - PYREXIA [None]
  - SHUNT INFECTION [None]
